FAERS Safety Report 14775488 (Version 1)
Quarter: 2018Q2

REPORT INFORMATION
  Report Type: Spontaneous
  Country: RO (occurrence: RO)
  Receive Date: 20180418
  Receipt Date: 20180418
  Transmission Date: 20180711
  Serious: Yes (Other)
  Sender: FDA-Public Use
  Company Number: RO-PFIZER INC-2018154572

PATIENT
  Age: 3 Year
  Sex: Female

DRUGS (3)
  1. SAB SIMPLEX /00159501/ [Concomitant]
     Indication: FLATULENCE
     Dosage: 45 GTT, DAILY
     Dates: start: 20180310, end: 20180312
  2. CEFTRIAXONE SODIUM. [Suspect]
     Active Substance: CEFTRIAXONE SODIUM
     Indication: GASTROENTERITIS
     Dosage: 1.4 G, DAILY
     Route: 042
     Dates: start: 20180310, end: 20180311
  3. DEBRIDAT /00465201/ [Concomitant]
     Active Substance: TRIMEBUTINE MALEATE
     Indication: FLATULENCE
     Dosage: 14 ML, DAILY
     Route: 048
     Dates: start: 20180310, end: 20180313

REACTIONS (3)
  - Tachypnoea [Recovered/Resolved]
  - Bronchospasm [Recovered/Resolved]
  - Dyspnoea [Recovered/Resolved]

NARRATIVE: CASE EVENT DATE: 20180311
